FAERS Safety Report 14896837 (Version 2)
Quarter: 2018Q2

REPORT INFORMATION
  Report Type: Spontaneous
  Country: US (occurrence: US)
  Receive Date: 20180515
  Receipt Date: 20180614
  Transmission Date: 20180711
  Serious: Yes (Hospitalization, Other)
  Sender: FDA-Public Use
  Company Number: US-JNJFOC-20180513696

PATIENT
  Age: 77 Year
  Sex: Male

DRUGS (1)
  1. ZYTIGA [Suspect]
     Active Substance: ABIRATERONE ACETATE
     Indication: PRODUCT USED FOR UNKNOWN INDICATION
     Route: 048
     Dates: end: 20180511

REACTIONS (5)
  - Internal haemorrhage [Unknown]
  - Liver injury [Unknown]
  - Pneumonia [Unknown]
  - Hospitalisation [Unknown]
  - Gastric disorder [Unknown]

NARRATIVE: CASE EVENT DATE: 201803
